FAERS Safety Report 5887572-5 (Version None)
Quarter: 2008Q3

REPORT INFORMATION
  Report Type: 
  Country: None (occurrence: None)
  Receive Date: 20080918
  Receipt Date: 20080912
  Transmission Date: 20090109
  Serious: Yes (Other)
  Sender: FDA-Public Use
  Company Number: PHHY2008ES21395

PATIENT
  Sex: Female

DRUGS (3)
  1. GLEEVEC [Suspect]
     Indication: CHRONIC MYELOID LEUKAEMIA
  2. ANTIHISTAMINICS [Concomitant]
  3. CORTICOSTEROID NOS [Concomitant]

REACTIONS (3)
  - LICHEN PLANUS [None]
  - ORAL LICHEN PLANUS [None]
  - RASH GENERALISED [None]
